FAERS Safety Report 7862326-9 (Version None)
Quarter: 2011Q4

REPORT INFORMATION
  Report Type: 
  Country: None (occurrence: None)
  Receive Date: 20111027
  Receipt Date: 20101105
  Transmission Date: 20120403
  Serious: No
  Sender: FDA-Public Use
  Company Number: US-AMGEN-USASP2010003709

PATIENT
  Age: 55 Year
  Sex: Female

DRUGS (2)
  1. ENBREL [Suspect]
     Indication: RHEUMATOID ARTHRITIS
     Dosage: 50 MG, QWK
     Dates: start: 20100913
  2. METHOTREXATE [Concomitant]
     Dates: start: 20100101

REACTIONS (3)
  - DRUG INEFFECTIVE [None]
  - HYPERSOMNIA [None]
  - FATIGUE [None]
